FAERS Safety Report 7176899-5 (Version None)
Quarter: 2010Q4

REPORT INFORMATION
  Report Type: 
  Country: None (occurrence: None)
  Receive Date: 20101215
  Receipt Date: 20101215
  Transmission Date: 20110411
  Serious: Yes (Disabling)
  Sender: FDA-Public Use
  Company Number: None

PATIENT
  Sex: Female
  Weight: 92.5338 kg

DRUGS (23)
  1. SAVELLA [Suspect]
     Indication: DEPRESSION
     Dosage: SAVELLA 25 MG BID PO
     Route: 048
     Dates: start: 20101028, end: 20101129
  2. DILAUDID [Concomitant]
  3. NEXIUM [Concomitant]
  4. ESTROPIPATE [Concomitant]
  5. METHOTREXATE [Concomitant]
  6. FUROSEMIDE [Concomitant]
  7. KLOR-CON [Concomitant]
  8. ALIGN PROBIOTIC [Concomitant]
  9. CELEXA [Concomitant]
  10. MILK OF MAGNESIA [Concomitant]
  11. LYRICA [Concomitant]
  12. FOLIC ACID [Concomitant]
  13. NITROGLYCERIN [Concomitant]
  14. ASPIRIN [Concomitant]
  15. IRON [Concomitant]
  16. ASCORBIC ACID [Concomitant]
  17. ONDANSETRON [Concomitant]
  18. LIPITOR [Concomitant]
  19. SKELAXIN [Concomitant]
  20. PERCOCET [Concomitant]
  21. KLONOPIN [Concomitant]
  22. OXYCONTIN [Concomitant]
  23. AMBIEN [Concomitant]

REACTIONS (1)
  - TARDIVE DYSKINESIA [None]
